FAERS Safety Report 5021506-0 (Version None)
Quarter: 2006Q2

REPORT INFORMATION
  Report Type: 
  Country: None (occurrence: None)
  Receive Date: 20060605
  Receipt Date: 20060526
  Transmission Date: 20061013
  Serious: Yes (Other)
  Sender: FDA-Public Use
  Company Number: 200612248BCC

PATIENT
  Age: 52 Year
  Sex: Female
  Weight: 62.5964 kg

DRUGS (2)
  1. ALKA-SELTZER PLUS EFFERVESCENT COLD + COUGH [Suspect]
     Dosage: ORAL
     Route: 048
     Dates: end: 19940101
  2. PREMARIN [Suspect]
     Dosage: ORAL
     Route: 048

REACTIONS (2)
  - BREAST CANCER FEMALE [None]
  - OESTROGEN RECEPTOR ASSAY POSITIVE [None]
